FAERS Safety Report 5712322-2 (Version None)
Quarter: 2008Q2

REPORT INFORMATION
  Report Type: 
  Country: None (occurrence: None)
  Receive Date: 20080421
  Receipt Date: 20080421
  Transmission Date: 20081010
  Serious: Yes (Other)
  Sender: FDA-Public Use
  Company Number: None

PATIENT
  Age: 36 Year
  Sex: Female
  Weight: 111.1313 kg

DRUGS (2)
  1. WELLBUTRIN XL [Suspect]
     Indication: DEPRESSION
     Dosage: 150 MG PER DAY PO
     Route: 048
     Dates: start: 20080406, end: 20080417
  2. WELLBUTRIN XL [Suspect]
     Indication: MIGRAINE
     Dosage: 150 MG PER DAY PO
     Route: 048
     Dates: start: 20080406, end: 20080417

REACTIONS (7)
  - AGITATION [None]
  - AMNESIA [None]
  - ANXIETY [None]
  - ASTHENIA [None]
  - HEADACHE [None]
  - SUICIDAL IDEATION [None]
  - TINNITUS [None]
